FAERS Safety Report 17565468 (Version 4)
Quarter: 2020Q4

REPORT INFORMATION
  Report Type: Spontaneous
  Country: US (occurrence: US)
  Receive Date: 20200320
  Receipt Date: 20201015
  Transmission Date: 20210113
  Serious: Yes (Other)
  Sender: FDA-Public Use
  Company Number: US-PFIZER INC-2020119111

PATIENT
  Age: 60 Year
  Sex: Female
  Weight: 108.86 kg

DRUGS (1)
  1. XELJANZ [Suspect]
     Active Substance: TOFACITINIB CITRATE
     Indication: RHEUMATOID ARTHRITIS
     Dosage: 5 MG, 2X/DAY
     Route: 048
     Dates: start: 202002, end: 202006

REACTIONS (11)
  - Therapeutic response unexpected [Unknown]
  - Hypersensitivity [Unknown]
  - Fall [Unknown]
  - Swelling [Unknown]
  - Contusion [Unknown]
  - Headache [Unknown]
  - Oropharyngeal pain [Unknown]
  - Sinusitis [Unknown]
  - Ear discomfort [Unknown]
  - Oral candidiasis [Unknown]
  - Erythema [Unknown]
